FAERS Safety Report 25979315 (Version 1)
Quarter: 2025Q4

REPORT INFORMATION
  Report Type: Spontaneous
  Country: ID (occurrence: ID)
  Receive Date: 20251030
  Receipt Date: 20251030
  Transmission Date: 20260118
  Serious: Yes (Other)
  Sender: RANBAXY
  Company Number: ID-SUN PHARMACEUTICAL INDUSTRIES INC-2025R1-533633

PATIENT
  Age: 32 Year
  Sex: Female

DRUGS (3)
  1. DOXORUBICIN [Suspect]
     Active Substance: DOXORUBICIN
     Indication: Chemotherapy
     Dosage: 60 MILLIGRAM
     Route: 065
     Dates: start: 202309, end: 202312
  2. CYCLOPHOSPHAMIDE [Suspect]
     Active Substance: CYCLOPHOSPHAMIDE
     Indication: Chemotherapy
     Dosage: 900 MILLIGRAM
     Route: 065
     Dates: start: 202309, end: 202312
  3. FLUOROURACIL [Suspect]
     Active Substance: FLUOROURACIL
     Indication: Chemotherapy
     Dosage: 800 MILLIGRAM, ONCE A MONTH FOR 4 (SEPTEMBER 2023 UNTIL DECEMBER 2023) MONTHS
     Route: 065
     Dates: start: 202309, end: 202312

REACTIONS (1)
  - Cardiac dysfunction [Recovering/Resolving]
